FAERS Safety Report 6434596-5 (Version None)
Quarter: 2009Q4

REPORT INFORMATION
  Report Type: 
  Country: None (occurrence: None)
  Receive Date: 20091110
  Receipt Date: 20091103
  Transmission Date: 20100525
  Serious: Yes (Hospitalization)
  Sender: FDA-Public Use
  Company Number: A0815868A

PATIENT
  Age: 49 Year
  Sex: Male

DRUGS (2)
  1. AVANDAMET [Suspect]
     Route: 048
     Dates: start: 20040204, end: 20040804
  2. AVANDIA [Suspect]
     Dosage: 8MG UNKNOWN
     Route: 048
     Dates: start: 20040106, end: 20040201

REACTIONS (3)
  - CARDIAC DISORDER [None]
  - CEREBROVASCULAR ACCIDENT [None]
  - MYOCARDIAL INFARCTION [None]
